FAERS Safety Report 7729900-1 (Version None)
Quarter: 2011Q3

REPORT INFORMATION
  Report Type: 
  Country: None (occurrence: None)
  Receive Date: 20110901
  Receipt Date: 20110901
  Transmission Date: 20111222
  Serious: Yes (Hospitalization)
  Sender: FDA-Public Use
  Company Number: None

PATIENT
  Sex: Female
  Weight: 107.0489 kg

DRUGS (2)
  1. SANDIMMUNE [Concomitant]
  2. CELLCEPT [Suspect]
     Indication: MYASTHENIA GRAVIS
     Dosage: 500MG BID  (2008 THROUGH 2010)

REACTIONS (1)
  - DRUG TOLERANCE [None]
